FAERS Safety Report 5047812-1 (Version None)
Quarter: 2006Q3

REPORT INFORMATION
  Report Type: 
  Country: None (occurrence: None)
  Receive Date: 20060710
  Receipt Date: 20060710
  Transmission Date: 20061208
  Serious: Yes (Hospitalization)
  Sender: FDA-Public Use
  Company Number: None

PATIENT
  Age: 75 Year
  Sex: Male
  Weight: 64 kg

DRUGS (6)
  1. TARGRETIN [Suspect]
     Indication: MESOTHELIOMA
     Dosage: 675 MG QD PO
     Route: 048
     Dates: start: 20060608, end: 20060705
  2. TARGRETIN [Suspect]
     Indication: METASTASIS
     Dosage: 675 MG QD PO
     Route: 048
     Dates: start: 20060608, end: 20060705
  3. DOCETAXOL 10 MG /CC AVENTIS [Suspect]
     Indication: MESOTHELIOMA
     Dosage: 62 MG Q WEEKSX3/4 WEEK IV DRIP
     Route: 041
     Dates: start: 20060608, end: 20060705
  4. DOCETAXOL 10 MG /CC AVENTIS [Suspect]
     Indication: METASTASIS
     Dosage: 62 MG Q WEEKSX3/4 WEEK IV DRIP
     Route: 041
     Dates: start: 20060608, end: 20060705
  5. LOVENOX [Concomitant]
  6. LEVAQUIN [Concomitant]

REACTIONS (2)
  - DYSPNOEA [None]
  - HAEMOPTYSIS [None]
